FAERS Safety Report 6229757-4 (Version None)
Quarter: 2009Q2

REPORT INFORMATION
  Report Type: 
  Country: None (occurrence: None)
  Receive Date: 20090615
  Receipt Date: 20090605
  Transmission Date: 20091009
  Serious: Yes (Other)
  Sender: FDA-Public Use
  Company Number: PHEH2009US05311

PATIENT
  Age: 69 Year
  Sex: Male
  Weight: 69.8 kg

DRUGS (12)
  1. ZOMETA [Suspect]
     Indication: METASTASES TO BONE
     Dosage: 4 MG, QMO
     Dates: start: 20070320, end: 20090323
  2. ZOMETA [Suspect]
     Indication: PROSTATE CANCER
  3. CASODEX [Concomitant]
     Indication: PROSTATE CANCER
     Dosage: UNK
     Route: 048
     Dates: start: 20061226
  4. DOXAZOSIN MESYLATE [Concomitant]
     Indication: HYPERTENSION
     Dosage: 4 MG, QD
     Route: 048
     Dates: start: 20061226
  5. ACTOS [Concomitant]
     Indication: DIABETES MELLITUS
     Dosage: 15 MG, QD
     Route: 048
     Dates: start: 20080505
  6. FLOMAX [Concomitant]
     Indication: CHRONIC OBSTRUCTIVE PULMONARY DISEASE
     Dosage: ONE INHALATION DAILY
     Dates: start: 20080505
  7. METFORMIN HYDROCHLORIDE [Concomitant]
     Indication: DIABETES MELLITUS
     Dosage: 850 MG, QD
     Dates: start: 20080505
  8. GLYBURIDE AND METFORMIN HCL [Concomitant]
     Indication: DIABETES MELLITUS
     Dosage: UNK
     Dates: start: 19620212, end: 20080505
  9. LUPRON [Concomitant]
     Indication: PROSTATE CANCER
     Dosage: 30 MG  IM EVERY 4 MONTHS
     Route: 030
     Dates: start: 20080508
  10. GABAPENTIN [Concomitant]
     Indication: NEUROPATHY PERIPHERAL
     Dosage: 10 MG, UNK
     Route: 048
     Dates: start: 20081027
  11. CYMBALTA [Concomitant]
     Indication: NEUROPATHY PERIPHERAL
     Dosage: UNK
     Dates: start: 20090126
  12. HYDROMORPHONE [Concomitant]
     Indication: PAIN IN JAW
     Dosage: 2 MG, PRN
     Dates: start: 20090413

REACTIONS (9)
  - ATROPHY [None]
  - BIOPSY [None]
  - BONE DISORDER [None]
  - CELLULITIS [None]
  - DEBRIDEMENT [None]
  - ERYTHEMA [None]
  - OSTEONECROSIS [None]
  - PAIN IN JAW [None]
  - SWELLING [None]
